FAERS Safety Report 9991590 (Version 1)
Quarter: 2014Q1

REPORT INFORMATION
  Report Type: Spontaneous
  Country: US (occurrence: US)
  Receive Date: 20140310
  Receipt Date: 20140310
  Transmission Date: 20141002
  Serious: Yes (Other)
  Sender: FDA-Public Use
  Company Number: US-PFIZER INC-2014068550

PATIENT
  Age: 51 Year
  Sex: Female
  Weight: 55.33 kg

DRUGS (5)
  1. LYRICA [Suspect]
     Indication: FIBROMYALGIA
     Dosage: 150 MG, 2X/DAY
     Dates: start: 2004
  2. SINGULAIR [Concomitant]
     Indication: ASTHMA
     Dosage: 10 MG, DAILY
  3. GLIPIZIDE [Concomitant]
     Indication: DIABETES MELLITUS
     Dosage: 0.5 MG, DAILY
     Dates: start: 2009
  4. LEVOTHYROXINE [Concomitant]
     Indication: HYPOTHYROIDISM
     Dosage: 50 MG, DAILY
     Dates: start: 1994
  5. PREDNISONE [Concomitant]
     Indication: CROHN^S DISEASE
     Dosage: 4 MG, DAILY

REACTIONS (3)
  - Kidney infection [Not Recovered/Not Resolved]
  - Dehydration [Unknown]
  - Nausea [Unknown]
